FAERS Safety Report 8330208-4 (Version None)
Quarter: 2012Q2

REPORT INFORMATION
  Report Type: 
  Country: None (occurrence: None)
  Receive Date: 20120502
  Receipt Date: 20120417
  Transmission Date: 20120825
  Serious: Yes (Other)
  Sender: FDA-Public Use
  Company Number: CHPA2012US009589

PATIENT
  Sex: Male

DRUGS (1)
  1. TRANSDERM SCOP [Suspect]
     Indication: MOTION SICKNESS
     Dosage: 1 DF, Q72H
     Route: 062
     Dates: end: 20120101

REACTIONS (5)
  - APPLICATION SITE SCAB [None]
  - APPLICATION SITE DISCOLOURATION [None]
  - NEURODERMATITIS [None]
  - PROCEDURAL PAIN [None]
  - APPLICATION SITE SCAR [None]
